FAERS Safety Report 8523215-X (Version None)
Quarter: 2012Q3

REPORT INFORMATION
  Report Type: 
  Country: None (occurrence: None)
  Receive Date: 20120709
  Receipt Date: 20120613
  Transmission Date: 20120928
  Serious: Yes (Other)
  Sender: FDA-Public Use
  Company Number: JP-1186008

PATIENT
  Age: 90 Year
  Sex: Female

DRUGS (1)
  1. AZOPT [Suspect]
     Dosage: OPHTHALMIC
     Route: 047
     Dates: start: 20110426

REACTIONS (3)
  - OEDEMA PERIPHERAL [None]
  - LIMB INJURY [None]
  - BACTERIAL INFECTION [None]
